FAERS Safety Report 8298647-8 (Version None)
Quarter: 2012Q2

REPORT INFORMATION
  Report Type: 
  Country: None (occurrence: None)
  Receive Date: 20120419
  Receipt Date: 20120411
  Transmission Date: 20120825
  Serious: Yes (Other)
  Sender: FDA-Public Use
  Company Number: DK-TEVA-319472ISR

PATIENT
  Sex: Female

DRUGS (13)
  1. METHOTREXATE [Suspect]
     Dosage: 10 MILLIGRAM;
     Route: 048
     Dates: start: 20080528, end: 20080829
  2. METHOTREXATE [Suspect]
     Dosage: 20 MILLIGRAM;
     Dates: start: 20100412
  3. METHOTREXATE [Suspect]
     Dosage: 10 MILLIGRAM;
     Route: 058
     Dates: start: 20120124
  4. METHOTREXATE [Suspect]
     Dosage: 15 MILLIGRAM;
     Route: 048
     Dates: start: 20080829, end: 20120128
  5. HUMIRA [Suspect]
     Indication: RHEUMATOID ARTHRITIS
     Dates: start: 20110215, end: 20110709
  6. METHOTREXATE [Suspect]
     Dosage: 25 MILLIGRAM;
     Route: 058
     Dates: start: 20100423
  7. METHOTREXATE [Suspect]
     Indication: RHEUMATOID ARTHRITIS
     Dosage: 5 MILLIGRAM;
     Route: 048
     Dates: start: 20071121
  8. METHOTREXATE [Suspect]
     Dosage: 10 MILLIGRAM;
     Route: 058
     Dates: start: 20110523, end: 20110704
  9. ALENDRONATE SODIUM [Concomitant]
     Indication: OSTEOPOROSIS
     Route: 048
  10. PANTOPRAZOLE [Concomitant]
     Dosage: 40 MILLIGRAM;
     Dates: start: 20090101
  11. METHOTREXATE [Suspect]
     Dosage: 15 MILLIGRAM; INJECTION (METEX)
     Dates: start: 20100129
  12. PAMOL [Concomitant]
  13. METHOTREXATE SODIUM [Suspect]
     Indication: RHEUMATOID ARTHRITIS
     Dates: start: 20100129, end: 20110704

REACTIONS (1)
  - LUNG NEOPLASM MALIGNANT [None]
